FAERS Safety Report 16282600 (Version 1)
Quarter: 2019Q2

REPORT INFORMATION
  Report Type: Spontaneous
  Country: US (occurrence: US)
  Receive Date: 20190507
  Receipt Date: 20190507
  Transmission Date: 20190711
  Serious: Yes (Other)
  Sender: FDA-Public Use
  Company Number: US-BAXTER-2019BAX008834

PATIENT
  Age: 60 Year
  Sex: Male

DRUGS (2)
  1. DOBUTAMINE HYDROCHLORIDE IN DEXTROSE [Suspect]
     Active Substance: DEXTROSE MONOHYDRATE\DEXTROSE MONOHYDRATE\DOBUTAMINE HYDROCHLORIDE\DOBUTAMINE HYDROCHLORIDE
     Indication: CARDIAC PHARMACOLOGIC STRESS TEST
     Dosage: INFUSED FOR 9 MIN AND 31 S, MAXIMUM DOSE WAS 40 UG/KG/MIN
     Route: 041
  2. ATROPINE. [Concomitant]
     Active Substance: ATROPINE
     Indication: HEART RATE ABNORMAL
     Route: 042

REACTIONS (1)
  - Electrocardiogram ST segment depression [Unknown]
